FAERS Safety Report 6936588-6 (Version None)
Quarter: 2010Q3

REPORT INFORMATION
  Report Type: 
  Country: None (occurrence: None)
  Receive Date: 20100823
  Receipt Date: 20100813
  Transmission Date: 20110219
  Serious: Yes (Death, Other)
  Sender: FDA-Public Use
  Company Number: JP-ROCHE-719973

PATIENT
  Age: 61 Year
  Sex: Male

DRUGS (20)
  1. CAPECITABINE [Suspect]
     Indication: RECTAL CANCER
     Dosage: IT IS ONE ADMINISTERING WEEKLY HOLIDAY MEDICINE FOR TWO WEEKS.
     Route: 048
     Dates: start: 20100528, end: 20100610
  2. CAPECITABINE [Suspect]
     Dosage: IT IS ONE ADMINISTERING WEEKLY HOLIDAY MEDICINE FOR TWO WEEKS.
     Route: 048
     Dates: start: 20100618, end: 20100701
  3. CAPECITABINE [Suspect]
     Dosage: IT IS ONE ADMINISTERING WEEKLY HOLIDAY MEDICINE FOR TWO WEEKS.
     Route: 048
     Dates: start: 20100709, end: 20100722
  4. BEVACIZUMAB [Suspect]
     Indication: RECTAL CANCER
     Route: 041
     Dates: start: 20100618, end: 20100618
  5. BEVACIZUMAB [Suspect]
     Dosage: DISCONTINUED
     Route: 041
     Dates: start: 20100709, end: 20100709
  6. OXALIPLATIN [Suspect]
     Indication: RECTAL CANCER
     Route: 041
     Dates: start: 20100528, end: 20100528
  7. OXALIPLATIN [Suspect]
     Route: 041
     Dates: start: 20100618, end: 20100618
  8. OXALIPLATIN [Suspect]
     Dosage: DISCONTINUED
     Route: 041
     Dates: start: 20100709, end: 20100709
  9. DEXART [Concomitant]
     Route: 041
     Dates: start: 20100528, end: 20100528
  10. DEXART [Concomitant]
     Route: 041
     Dates: start: 20100618, end: 20100618
  11. DEXART [Concomitant]
     Route: 041
     Dates: start: 20100709, end: 20100709
  12. KYTRIL [Concomitant]
     Route: 041
     Dates: start: 20100528, end: 20100528
  13. KYTRIL [Concomitant]
     Route: 041
     Dates: start: 20100618, end: 20100618
  14. KYTRIL [Concomitant]
     Route: 041
     Dates: start: 20100709, end: 20100709
  15. DECADRON [Concomitant]
     Route: 048
     Dates: start: 20100529, end: 20100531
  16. DECADRON [Concomitant]
     Route: 048
     Dates: start: 20100619, end: 20100621
  17. DECADRON [Concomitant]
     Route: 048
     Dates: start: 20100710, end: 20100712
  18. OXYCONTIN [Concomitant]
     Dosage: DOSE FORM: SUSTAINED-RELEASE TABLET
     Route: 048
     Dates: end: 20100804
  19. LOXONIN [Concomitant]
     Route: 048
     Dates: end: 20100804
  20. LANSOPRAZOLE [Concomitant]
     Route: 048
     Dates: start: 20100528, end: 20100804

REACTIONS (9)
  - CONSTIPATION [None]
  - DECREASED APPETITE [None]
  - DIARRHOEA [None]
  - GASTROINTESTINAL HAEMORRHAGE [None]
  - NAUSEA [None]
  - NEUROPATHY PERIPHERAL [None]
  - PIGMENTATION DISORDER [None]
  - RASH [None]
  - RECTAL ULCER [None]
